FAERS Safety Report 11266496 (Version 2)
Quarter: 2015Q3

REPORT INFORMATION
  Report Type: Report from Study
  Country: PL (occurrence: PL)
  Receive Date: 20150713
  Receipt Date: 20150817
  Transmission Date: 20151125
  Serious: Yes (Hospitalization)
  Sender: FDA-Public Use
  Company Number: PHHY2015PL082235

PATIENT
  Age: 10 Year
  Sex: Female
  Weight: 22.5 kg

DRUGS (1)
  1. SOMATROPIN [Suspect]
     Active Substance: SOMATROPIN
     Indication: PRODUCT USED FOR UNKNOWN INDICATION
     Dosage: 0.75 MG, UNK
     Route: 058
     Dates: start: 20091217

REACTIONS (2)
  - Myringotomy [Recovering/Resolving]
  - Stapedotomy [Recovering/Resolving]

NARRATIVE: CASE EVENT DATE: 20150321
